FAERS Safety Report 8003156-7 (Version None)
Quarter: 2011Q4

REPORT INFORMATION
  Report Type: 
  Country: None (occurrence: None)
  Receive Date: 20111222
  Receipt Date: 20111214
  Transmission Date: 20120403
  Serious: Yes (Other)
  Sender: FDA-Public Use
  Company Number: PHEH2011US02525

PATIENT
  Sex: Male
  Weight: 68.027 kg

DRUGS (2)
  1. EXJADE [Suspect]
     Dosage: 500 MG, QD
     Route: 048
     Dates: start: 20080221
  2. EXJADE [Suspect]
     Indication: IRON OVERLOAD
     Dosage: 500 MG, DAILY
     Route: 048
     Dates: start: 20060516

REACTIONS (3)
  - WEIGHT DECREASED [None]
  - FATIGUE [None]
  - DIARRHOEA [None]
